FAERS Safety Report 8223033-6 (Version None)
Quarter: 2012Q1

REPORT INFORMATION
  Report Type: 
  Country: None (occurrence: None)
  Receive Date: 20120321
  Receipt Date: 20120315
  Transmission Date: 20120608
  Serious: Yes (Other)
  Sender: FDA-Public Use
  Company Number: US-AMGEN-USASP2010007146

PATIENT
  Age: 54 Year
  Sex: Female
  Weight: 54.422 kg

DRUGS (4)
  1. ESTRACE [Concomitant]
     Dosage: 1 MG, QD
     Dates: start: 20101107, end: 20101127
  2. CALCIUM CARBONATE [Concomitant]
     Dates: end: 20101129
  3. PROLIA [Suspect]
     Indication: OSTEOPOROSIS POSTMENOPAUSAL
     Dosage: 60 MG, Q6MO
     Route: 058
     Dates: start: 20100930, end: 20101209
  4. VITAMIN D [Concomitant]
     Dates: end: 20101129

REACTIONS (20)
  - FACE OEDEMA [None]
  - SWELLING [None]
  - ALOPECIA [None]
  - ARTHRALGIA [None]
  - SKIN HYPERTROPHY [None]
  - OCULAR HYPERAEMIA [None]
  - DRY SKIN [None]
  - NECK PAIN [None]
  - SOMNOLENCE [None]
  - EYE SWELLING [None]
  - BREAST DISCOMFORT [None]
  - BACK PAIN [None]
  - CONSTIPATION [None]
  - SKIN SENSITISATION [None]
  - VISION BLURRED [None]
  - AXILLARY PAIN [None]
  - HYPERSENSITIVITY [None]
  - PRURITUS GENERALISED [None]
  - INJECTION SITE REACTION [None]
  - PARAESTHESIA [None]
